FAERS Safety Report 7214086 (Version 2)
Quarter: 2013Q3

REPORT INFORMATION
  Report Type: Spontaneous
  Country: None (occurrence: None)
  Receive Date: 20091130
  Receipt Date: 20130709
  Transmission Date: 20140515
  Serious: Yes (Hospitalization, Other)
  Sender: FDA-Public Use
  Company Number: AUR-APL-2009-01261

PATIENT
  Age: 76 Year
  Sex: Male

DRUGS (4)
  1. TOPIRAMATE (TOPIRAMATE) [Suspect]
     Indication: TRIGEMINAL NEURALGIA
  2. CARBAMAZEPINE [Concomitant]
  3. ENALAPRIL [Concomitant]
  4. GLUBURIDE (GLYBURIDE) [Concomitant]

REACTIONS (11)
  - Renal tubular acidosis [None]
  - Acidosis hyperchloraemic [None]
  - Pyrexia [None]
  - Chills [None]
  - Leukocytosis [None]
  - Hyponatraemia [None]
  - Haemoglobin decreased [None]
  - Hepatic steatosis [None]
  - Metabolic acidosis [None]
  - Base excess [None]
  - Klebsiella infection [None]
